FAERS Safety Report 8184675-X (Version None)
Quarter: 2012Q1

REPORT INFORMATION
  Report Type: 
  Country: None (occurrence: None)
  Receive Date: 20120305
  Receipt Date: 20120302
  Transmission Date: 20120608
  Serious: Yes (Other)
  Sender: FDA-Public Use
  Company Number: FR-GLAXOSMITHKLINE-B0781744A

PATIENT
  Sex: Female
  Weight: 91 kg

DRUGS (2)
  1. LEVOTHYROXINE SODIUM [Concomitant]
     Dates: start: 19980101
  2. ALLI [Suspect]
     Indication: WEIGHT DECREASED
     Dosage: 3CAP PER DAY
     Route: 065
     Dates: start: 20111103, end: 20111201

REACTIONS (6)
  - TRANSAMINASES INCREASED [None]
  - NAUSEA [None]
  - CYTOLYTIC HEPATITIS [None]
  - ALANINE AMINOTRANSFERASE INCREASED [None]
  - ASTHENIA [None]
  - ASPARTATE AMINOTRANSFERASE INCREASED [None]
